FAERS Safety Report 14033232 (Version 1)
Quarter: 2017Q4

REPORT INFORMATION
  Report Type: Spontaneous
  Country: US (occurrence: US)
  Receive Date: 20171002
  Receipt Date: 20171002
  Transmission Date: 20180321
  Serious: No
  Sender: FDA-Public Use
  Company Number: US-JAZZ-2017-US-010060

PATIENT
  Sex: Female

DRUGS (8)
  1. IBUPROFEN. [Concomitant]
     Active Substance: IBUPROFEN
     Indication: PAIN
  2. DICLOFENAC [Concomitant]
     Active Substance: DICLOFENAC
     Indication: FIBROMYALGIA
  3. XYREM [Suspect]
     Active Substance: SODIUM OXYBATE
     Dosage: DOSE ADJUSTMENT
     Route: 048
     Dates: start: 201111, end: 2017
  4. XYREM [Suspect]
     Active Substance: SODIUM OXYBATE
     Indication: NARCOLEPSY
     Dosage: 2.25G, BID
     Route: 048
     Dates: start: 201110, end: 201111
  5. XYREM [Suspect]
     Active Substance: SODIUM OXYBATE
     Dosage: 4 G, BID
     Route: 048
     Dates: start: 2017, end: 201702
  6. DICLOFENAC [Concomitant]
     Active Substance: DICLOFENAC
     Indication: INTERVERTEBRAL DISC DEGENERATION
  7. METHOCARBAMOL. [Concomitant]
     Active Substance: METHOCARBAMOL
     Indication: INTERVERTEBRAL DISC DEGENERATION
  8. METHOCARBAMOL. [Concomitant]
     Active Substance: METHOCARBAMOL
     Indication: FIBROMYALGIA

REACTIONS (10)
  - Condition aggravated [Unknown]
  - Mycotic allergy [Unknown]
  - Muscle tightness [Unknown]
  - Snoring [Unknown]
  - Dust allergy [Unknown]
  - Irritability [Unknown]
  - Feeling jittery [Recovering/Resolving]
  - Intervertebral disc degeneration [Unknown]
  - Therapeutic response unexpected [Unknown]
  - Pre-existing condition improved [Unknown]
